FAERS Safety Report 16839628 (Version 1)
Quarter: 2019Q3

REPORT INFORMATION
  Report Type: Spontaneous
  Country: US (occurrence: US)
  Receive Date: 20190731
  Receipt Date: 20190731
  Transmission Date: 20191005
  Serious: Yes (Other)
  Sender: FDA-Public Use
  Company Number: None

PATIENT
  Age: 44 Year
  Sex: Male

DRUGS (10)
  1. AMBRISENTAN 10MG TABLETS 30/BO: 10MG [Suspect]
     Active Substance: AMBRISENTAN
     Indication: PULMONARY ARTERIAL HYPERTENSION
     Route: 048
     Dates: start: 201906
  2. TYLENOL [Concomitant]
     Active Substance: ACETAMINOPHEN
  3. GABAPENTIN. [Concomitant]
     Active Substance: GABAPENTIN
  4. VENTOLIN HFA [Concomitant]
     Active Substance: ALBUTEROL SULFATE
  5. UPTRAVI [Concomitant]
     Active Substance: SELEXIPAG
  6. TRIUMEQ [Concomitant]
     Active Substance: ABACAVIR SULFATE\DOLUTEGRAVIR SODIUM\LAMIVUDINE
  7. SPIRONOLACTONE. [Concomitant]
     Active Substance: SPIRONOLACTONE
  8. LASIX [Concomitant]
     Active Substance: FUROSEMIDE
  9. NAPROXEN. [Concomitant]
     Active Substance: NAPROXEN
  10. TADALAFIL. [Concomitant]
     Active Substance: TADALAFIL

REACTIONS (1)
  - Skin laceration [None]

NARRATIVE: CASE EVENT DATE: 20190725
